FAERS Safety Report 10554150 (Version 2)
Quarter: 2014Q4

REPORT INFORMATION
  Report Type: Spontaneous
  Country: US (occurrence: US)
  Receive Date: 20141030
  Receipt Date: 20141030
  Transmission Date: 20150529
  Serious: Yes (Hospitalization, Other)
  Sender: FDA-Public Use
  Company Number: US-GLAXOSMITHKLINE-A0803562A

PATIENT
  Sex: Male
  Weight: 109 kg

DRUGS (11)
  1. HUMALOG [Concomitant]
     Active Substance: INSULIN LISPRO
  2. CLONIDINE. [Concomitant]
     Active Substance: CLONIDINE
  3. LISINOPRIL. [Concomitant]
     Active Substance: LISINOPRIL
  4. ATENOLOL. [Concomitant]
     Active Substance: ATENOLOL
  5. FUROSEMIDE. [Concomitant]
     Active Substance: FUROSEMIDE
  6. VIAGRA [Concomitant]
     Active Substance: SILDENAFIL CITRATE
  7. DIOVAN [Concomitant]
     Active Substance: VALSARTAN
  8. CADUET [Concomitant]
     Active Substance: AMLODIPINE BESYLATE\ATORVASTATIN CALCIUM
  9. VICODIN [Concomitant]
     Active Substance: ACETAMINOPHEN\HYDROCODONE BITARTRATE
  10. AVANDIA [Suspect]
     Active Substance: ROSIGLITAZONE MALEATE
     Indication: DIABETES MELLITUS
     Dosage: 8 MG, QD
     Route: 048
     Dates: start: 200210, end: 20070801
  11. IBUPROFEN. [Concomitant]
     Active Substance: IBUPROFEN

REACTIONS (3)
  - Brain stem infarction [Unknown]
  - Cerebrovascular accident [Not Recovered/Not Resolved]
  - Transient ischaemic attack [Unknown]
